FAERS Safety Report 9220610 (Version 3)
Quarter: 2013Q4

REPORT INFORMATION
  Report Type: Spontaneous
  Country: US (occurrence: US)
  Receive Date: 20130409
  Receipt Date: 20131231
  Transmission Date: 20140711
  Serious: Yes (Hospitalization, Other)
  Sender: FDA-Public Use
  Company Number: US-BAYER-2013-044817

PATIENT
  Age: 20 Year
  Sex: Female
  Weight: 77 kg

DRUGS (10)
  1. YAZ [Suspect]
     Indication: PREMENSTRUAL SYNDROME
     Dosage: UNK
     Route: 048
     Dates: start: 201005, end: 201201
  2. YAZ [Suspect]
     Indication: OVARIAN CYST
  3. YAZ [Suspect]
     Indication: PREMENSTRUAL DYSPHORIC DISORDER
  4. ADVIL [Concomitant]
     Dosage: UNK
     Dates: start: 2005
  5. ADVIL [Concomitant]
  6. NABUMETONE [Concomitant]
     Indication: ABDOMINAL PAIN UPPER
     Dosage: 500 MG, UNK
  7. ZANTAC [Concomitant]
     Indication: ABDOMINAL PAIN UPPER
  8. OXYCODONE/APAP [Concomitant]
  9. TYLENOL #3 [Concomitant]
     Indication: PAIN
  10. VICODIN [Concomitant]

REACTIONS (4)
  - Deep vein thrombosis [None]
  - Pain [None]
  - Injury [None]
  - Mental disorder [None]
